FAERS Safety Report 9199525 (Version 1)
Quarter: 2013Q1

REPORT INFORMATION
  Report Type: Spontaneous
  Country: US (occurrence: US)
  Receive Date: 20130329
  Receipt Date: 20130329
  Transmission Date: 20140127
  Serious: Yes (Other)
  Sender: FDA-Public Use
  Company Number: US-ASTELLAS-2012US010291

PATIENT
  Age: 61 Year
  Sex: Male
  Weight: 76.19 kg

DRUGS (4)
  1. PROGRAF [Suspect]
     Indication: GRAFT VERSUS HOST DISEASE
     Dosage: UNK
     Route: 065
  2. CIDOFOVIR [Suspect]
     Indication: ADENOVIRUS INFECTION
     Dosage: UNK
     Route: 042
     Dates: start: 20120702
  3. ZOLOFT [Concomitant]
     Indication: DEPRESSION
     Dosage: UNK
     Route: 065
  4. NORVASC [Concomitant]
     Indication: HYPERTENSION
     Dosage: UNK
     Route: 065

REACTIONS (25)
  - Off label use [Unknown]
  - Failure to thrive [Unknown]
  - Chronic graft versus host disease [Unknown]
  - Subdural haematoma [Unknown]
  - Hypogammaglobulinaemia [Recovering/Resolving]
  - Cholecystitis [Unknown]
  - Clostridium difficile colitis [Unknown]
  - Posterior reversible encephalopathy syndrome [Recovered/Resolved]
  - Blood creatinine increased [Unknown]
  - Pulmonary mass [Unknown]
  - Adenovirus infection [Recovered/Resolved]
  - Renal failure acute [Unknown]
  - Escherichia urinary tract infection [Unknown]
  - Escherichia bacteraemia [Unknown]
  - Urinary tract infection enterococcal [Unknown]
  - Pneumonia fungal [Unknown]
  - Escherichia infection [Unknown]
  - Faecal incontinence [Unknown]
  - Cholelithiasis [Unknown]
  - Decubitus ulcer [Unknown]
  - Increased tendency to bruise [Unknown]
  - Dry eye [Unknown]
  - Urinary incontinence [Unknown]
  - Nausea [Unknown]
  - Vision blurred [Unknown]
